FAERS Safety Report 16542140 (Version 2)
Quarter: 2019Q3

REPORT INFORMATION
  Report Type: Report from Study
  Country: US (occurrence: US)
  Receive Date: 20190708
  Receipt Date: 20190731
  Transmission Date: 20191004
  Serious: Yes (Death, Hospitalization)
  Sender: FDA-Public Use
  Company Number: US-ACTELION-A-US2019-188528

PATIENT
  Age: 77 Year
  Sex: Male

DRUGS (12)
  1. COUMADIN [Concomitant]
     Active Substance: WARFARIN SODIUM
  2. SPIRIVA [Concomitant]
     Active Substance: TIOTROPIUM BROMIDE MONOHYDRATE
  3. SYNTHROID [Concomitant]
     Active Substance: LEVOTHYROXINE SODIUM
  4. COZAAR [Concomitant]
     Active Substance: LOSARTAN POTASSIUM
  5. OPSUMIT [Suspect]
     Active Substance: MACITENTAN
     Indication: PULMONARY ARTERIAL HYPERTENSION
     Dosage: 10 MG, QAM
     Route: 048
     Dates: start: 20170325, end: 20190630
  6. PREDNISONE. [Concomitant]
     Active Substance: PREDNISONE
  7. PROSCAR [Concomitant]
     Active Substance: FINASTERIDE
  8. ADEMPAS [Concomitant]
     Active Substance: RIOCIGUAT
  9. AMBIEN [Concomitant]
     Active Substance: ZOLPIDEM TARTRATE
  10. FLOMAX [Concomitant]
     Active Substance: TAMSULOSIN HYDROCHLORIDE
  11. FUROSEMIDE. [Concomitant]
     Active Substance: FUROSEMIDE
  12. K-TAB [Concomitant]
     Active Substance: POTASSIUM CHLORIDE

REACTIONS (4)
  - Death [Fatal]
  - Infection [Not Recovered/Not Resolved]
  - Seasonal allergy [Unknown]
  - Intestinal obstruction [Not Recovered/Not Resolved]

NARRATIVE: CASE EVENT DATE: 201903
